FAERS Safety Report 13662753 (Version 1)
Quarter: 2017Q2

REPORT INFORMATION
  Report Type: Spontaneous
  Country: US (occurrence: US)
  Receive Date: 20170618
  Receipt Date: 20170618
  Transmission Date: 20170830
  Serious: Yes (Other)
  Sender: FDA-Public Use
  Company Number: US-ROCHE-1950961

PATIENT
  Sex: Female

DRUGS (4)
  1. SOMATROPIN [Suspect]
     Active Substance: SOMATROPIN
     Indication: GROWTH HORMONE DEFICIENCY
     Route: 065
  2. ARIPIPRAZOLE. [Suspect]
     Active Substance: ARIPIPRAZOLE
     Indication: ABNORMAL BEHAVIOUR
     Route: 065
  3. LEVOTHYROXINE. [Concomitant]
     Active Substance: LEVOTHYROXINE
     Indication: HYPOTHYROIDISM
  4. HYDROCORTISONE. [Concomitant]
     Active Substance: HYDROCORTISONE
     Indication: ADRENAL INSUFFICIENCY

REACTIONS (15)
  - Sleep apnoea syndrome [Unknown]
  - Adipomastia [Recovered/Resolved]
  - Constipation [Unknown]
  - Crying [Unknown]
  - Abnormal behaviour [Not Recovered/Not Resolved]
  - Hormone level abnormal [Recovered/Resolved]
  - Enuresis [Unknown]
  - Mental disorder [Unknown]
  - Weight increased [Unknown]
  - Screaming [Unknown]
  - Body height decreased [Recovering/Resolving]
  - Vaginal haemorrhage [Recovered/Resolved]
  - Menstruation irregular [Unknown]
  - Tic [Not Recovered/Not Resolved]
  - Intentional self-injury [Unknown]
